FAERS Safety Report 4847477-5 (Version None)
Quarter: 2005Q4

REPORT INFORMATION
  Report Type: 
  Country: None (occurrence: None)
  Receive Date: 20051205
  Receipt Date: 20051121
  Transmission Date: 20060501
  Serious: Yes (Disabling)
  Sender: FDA-Public Use
  Company Number: 2005-130482-NL

PATIENT
  Age: 18 Month
  Sex: Male

DRUGS (16)
  1. PANCURONIUM [Suspect]
     Indication: LIFE SUPPORT
     Dosage: 0.3 MG S1HR/0.2 MG Q1HR
     Route: 041
     Dates: start: 20020520, end: 20020520
  2. PANCURONIUM [Suspect]
     Indication: LIFE SUPPORT
     Dosage: 0.3 MG S1HR/0.2 MG Q1HR
     Route: 041
     Dates: start: 20020521, end: 20020527
  3. MENATETRENONE [Concomitant]
  4. CARBAZOCHROME SODIUM SULFONATE [Concomitant]
  5. TRANEXAMIC ACID [Concomitant]
  6. CALCIUM GLUCONATE [Concomitant]
  7. DEXAMETHASONE [Concomitant]
  8. CEFMETAZOLE SODIUM [Concomitant]
  9. ULINASTATIN [Concomitant]
  10. DOBUTAMINE HCL [Concomitant]
  11. FENTANYL CITRATE [Concomitant]
  12. DOPAMINE HCL [Concomitant]
  13. GLYCERYL TRINITRATE [Concomitant]
  14. ALPROSTADIL [Concomitant]
  15. CHLORPROMAZINE HCL [Concomitant]
  16. NITRIC OXIDE [Concomitant]

REACTIONS (2)
  - DEAFNESS NEUROSENSORY [None]
  - SPEECH DISORDER DEVELOPMENTAL [None]
